FAERS Safety Report 6337365-X (Version None)
Quarter: 2009Q3

REPORT INFORMATION
  Report Type: 
  Country: None (occurrence: None)
  Receive Date: 20090901
  Receipt Date: 20090901
  Transmission Date: 20100115
  Serious: No
  Sender: FDA-Public Use
  Company Number: None

PATIENT
  Age: 37 Year
  Sex: Female
  Weight: 85.2762 kg

DRUGS (2)
  1. TOPIRAMATE [Suspect]
     Indication: MIGRAINE
     Dosage: 50 MG (1 PILL) AM AND PM ORAL
     Route: 048
     Dates: start: 20090502, end: 20090530
  2. NADOLOL [Concomitant]

REACTIONS (8)
  - DISTURBANCE IN ATTENTION [None]
  - DIZZINESS [None]
  - DYSGEUSIA [None]
  - ERYTHEMA [None]
  - NERVOUSNESS [None]
  - RASH PRURITIC [None]
  - SOMNOLENCE [None]
  - VISION BLURRED [None]
